FAERS Safety Report 4842298-1 (Version None)
Quarter: 2005Q4

REPORT INFORMATION
  Report Type: 
  Country: None (occurrence: None)
  Receive Date: 20051129
  Receipt Date: 20051109
  Transmission Date: 20060501
  Serious: Yes (Hospitalization)
  Sender: FDA-Public Use
  Company Number: US_0510123344

PATIENT
  Age: 46 Year
  Sex: Female

DRUGS (2)
  1. ZYPREXA [Suspect]
     Dosage: 10 MG
     Dates: start: 20040101
  2. XANAX [Concomitant]

REACTIONS (4)
  - HYPERSOMNIA [None]
  - INSOMNIA [None]
  - SEDATION [None]
  - WEIGHT INCREASED [None]
